FAERS Safety Report 15385524 (Version 1)
Quarter: 2018Q3

REPORT INFORMATION
  Report Type: Spontaneous
  Country: US (occurrence: US)
  Receive Date: 20180914
  Receipt Date: 20180914
  Transmission Date: 20181010
  Serious: Yes (Other)
  Sender: FDA-Public Use
  Company Number: US-ASTELLAS-2018US040275

PATIENT
  Sex: Male

DRUGS (3)
  1. CLONAZEPAM. [Interacting]
     Active Substance: CLONAZEPAM
     Indication: ANXIETY
  2. CLONAZEPAM. [Interacting]
     Active Substance: CLONAZEPAM
     Indication: INSOMNIA
     Dosage: UNK UNK, UNKNOWN FREQ.
     Route: 065
  3. XTANDI [Suspect]
     Active Substance: ENZALUTAMIDE
     Indication: PROSTATE CANCER
     Route: 048
     Dates: start: 20180906

REACTIONS (7)
  - Insomnia [Unknown]
  - Liver disorder [Unknown]
  - Pathological fracture [Unknown]
  - Anxiety [Unknown]
  - Procedural pain [Unknown]
  - Drug interaction [Unknown]
  - Malignant neoplasm progression [Unknown]
